FAERS Safety Report 6354791-3 (Version None)
Quarter: 2009Q3

REPORT INFORMATION
  Report Type: 
  Country: None (occurrence: None)
  Receive Date: 20090909
  Receipt Date: 20090904
  Transmission Date: 20100115
  Serious: Yes (Life-Threatening, Other)
  Sender: FDA-Public Use
  Company Number: 2009SP023659

PATIENT
  Age: 9 Year
  Sex: Male
  Weight: 30 kg

DRUGS (1)
  1. BETAMETHASONE [Suspect]
     Indication: LARYNGITIS
     Dosage: 90 GTT, ONCE, PO
     Route: 048
     Dates: start: 20090808, end: 20090808

REACTIONS (7)
  - COMA [None]
  - CONVULSION [None]
  - EXPIRED DRUG ADMINISTERED [None]
  - HYPOXIA [None]
  - LARYNGEAL OBSTRUCTION [None]
  - LOSS OF CONSCIOUSNESS [None]
  - RESPIRATORY DISTRESS [None]
